FAERS Safety Report 6527175-2 (Version None)
Quarter: 2010Q1

REPORT INFORMATION
  Report Type: 
  Country: None (occurrence: None)
  Receive Date: 20100105
  Receipt Date: 20091224
  Transmission Date: 20100710
  Serious: Yes (Hospitalization)
  Sender: FDA-Public Use
  Company Number: B0620814A

PATIENT
  Age: 48 Year
  Sex: Female

DRUGS (2)
  1. TYKERB [Suspect]
     Indication: BREAST CANCER
     Route: 048
     Dates: start: 20091001, end: 20091201
  2. XELODA [Concomitant]
     Route: 048
     Dates: start: 20091001, end: 20091201

REACTIONS (3)
  - DIARRHOEA [None]
  - PARONYCHIA [None]
  - VOMITING [None]
